FAERS Safety Report 9375115 (Version 1)
Quarter: 2013Q2

REPORT INFORMATION
  Report Type: Spontaneous
  Country: US (occurrence: US)
  Receive Date: 20130628
  Receipt Date: 20130628
  Transmission Date: 20140414
  Serious: No
  Sender: FDA-Public Use
  Company Number: US-BAYER-2013-077911

PATIENT
  Age: 56 Year
  Sex: Male

DRUGS (7)
  1. BETASERON [Suspect]
     Indication: MULTIPLE SCLEROSIS
     Dosage: 1 ML, UNK
     Route: 058
     Dates: start: 2011
  2. BACLOFEN [Concomitant]
  3. CLONAZEPAM [Concomitant]
  4. FLOMAX (MORNIFLUMATE) [Concomitant]
  5. LIPITOR [Concomitant]
  6. NABUMETONE [Concomitant]
  7. TIZANIDINE [Concomitant]

REACTIONS (1)
  - Constipation [None]
